FAERS Safety Report 5498065-1 (Version None)
Quarter: 2007Q4

REPORT INFORMATION
  Report Type: 
  Country: None (occurrence: None)
  Receive Date: 20071018
  Receipt Date: 20070703
  Transmission Date: 20080405
  Serious: Yes (Other)
  Sender: FDA-Public Use
  Company Number: 2007054960

PATIENT
  Age: 69 Year
  Sex: Female
  Weight: 117.7 kg

DRUGS (5)
  1. NEURONTIN [Suspect]
     Indication: DIABETIC NEUROPATHY
     Dosage: 1200 MG (600 MG, 2 IN 1 D)
     Dates: start: 20030101
  2. LYRICA [Suspect]
     Indication: DIABETIC NEUROPATHY
     Dosage: 100 MG (50 MG, 2 IN 1 D)
     Dates: start: 20070626
  3. LYRICA [Suspect]
     Indication: FIBROMYALGIA
     Dosage: 100 MG (50 MG, 2 IN 1 D)
     Dates: start: 20070626
  4. TENORMIN [Concomitant]
  5. VALSARTAN [Concomitant]

REACTIONS (6)
  - BALANCE DISORDER [None]
  - DIPLOPIA [None]
  - DISTURBANCE IN ATTENTION [None]
  - DIZZINESS [None]
  - FIBROMYALGIA [None]
  - VISION BLURRED [None]
